FAERS Safety Report 4687818-5 (Version None)
Quarter: 2005Q2

REPORT INFORMATION
  Report Type: 
  Country: None (occurrence: None)
  Receive Date: 20050610
  Receipt Date: 20050510
  Transmission Date: 20051028
  Serious: Yes (Hospitalization, Other)
  Sender: FDA-Public Use
  Company Number: US-MERCK-0505USA01301

PATIENT
  Age: 46 Year
  Sex: Female

DRUGS (3)
  1. MAXALT-MLT [Suspect]
     Indication: MIGRAINE
     Route: 048
     Dates: start: 20020101, end: 20050401
  2. SYNTHROID [Concomitant]
     Indication: THYROID DISORDER
     Route: 065
  3. ARMOUR THYROID TABLETS [Concomitant]
     Route: 048

REACTIONS (2)
  - COLITIS ISCHAEMIC [None]
  - MEDICATION ERROR [None]
